FAERS Safety Report 4782420-9 (Version None)
Quarter: 2005Q3

REPORT INFORMATION
  Report Type: 
  Country: None (occurrence: None)
  Receive Date: 20050929
  Receipt Date: 20040923
  Transmission Date: 20060218
  Serious: No
  Sender: FDA-Public Use
  Company Number: 383444

PATIENT
  Age: 76 Year
  Sex: Male

DRUGS (9)
  1. COREG [Suspect]
     Dosage: 12.5MG TWICE PER DAY
     Route: 048
  2. GLYBURIDE [Concomitant]
  3. AVAPRO [Concomitant]
  4. FLOMAX [Concomitant]
  5. FUROSEMIDE [Concomitant]
  6. AVANDIA [Concomitant]
  7. ASPIRIN [Concomitant]
  8. SAW PALMETTO [Concomitant]
  9. FOLIC ACID [Concomitant]

REACTIONS (1)
  - DYSPNOEA [None]
